FAERS Safety Report 24768655 (Version 2)
Quarter: 2025Q1

REPORT INFORMATION
  Report Type: Report from Study
  Country: US (occurrence: US)
  Receive Date: 20241224
  Receipt Date: 20250122
  Transmission Date: 20250408
  Serious: Yes (Other)
  Sender: ABBVIE
  Company Number: US-ABBVIE-6052727

PATIENT
  Age: 51 Year
  Sex: Female

DRUGS (1)
  1. HUMIRA [Suspect]
     Active Substance: ADALIMUMAB
     Indication: Product used for unknown indication
     Route: 058
     Dates: start: 20190901

REACTIONS (13)
  - Intestinal obstruction [Recovered/Resolved]
  - Skin disorder [Unknown]
  - Colitis [Recovered/Resolved]
  - Large intestinal obstruction [Recovering/Resolving]
  - Hepatocellular carcinoma [Recovered/Resolved]
  - Eye inflammation [Recovered/Resolved]
  - Abdominal distension [Recovered/Resolved]
  - Acrochordon [Unknown]
  - Scab [Unknown]
  - Pruritus [Recovered/Resolved]
  - Mass [Recovered/Resolved]
  - Ear inflammation [Recovered/Resolved]
  - Nasal inflammation [Recovered/Resolved]

NARRATIVE: CASE EVENT DATE: 20240101
